FAERS Safety Report 4540746-8 (Version None)
Quarter: 2005Q1

REPORT INFORMATION
  Report Type: 
  Country: None (occurrence: None)
  Receive Date: 20041223
  Receipt Date: 20040913
  Transmission Date: 20050727
  Serious: No
  Sender: FDA-Public Use
  Company Number: US-JNJFOC-20040904569

PATIENT
  Age: 29 Year
  Sex: Female
  Weight: 73.9363 kg

DRUGS (4)
  1. ORTHO EVRA [Suspect]
     Indication: MENSTRUATION IRREGULAR
     Dosage: 1 DOSE(S), 3 IN 4 WEEK, TRANSDERMAL
     Route: 062
  2. SUDAFED 12 HOUR [Concomitant]
  3. ZYRTEC [Concomitant]
  4. ADVAIR (SERETIDE MITE) [Concomitant]

REACTIONS (1)
  - BREAST DISCHARGE [None]
